FAERS Safety Report 7206325-9 (Version None)
Quarter: 2011Q1

REPORT INFORMATION
  Report Type: 
  Country: None (occurrence: None)
  Receive Date: 20110103
  Receipt Date: 20110103
  Transmission Date: 20110831
  Serious: Yes (Hospitalization)
  Sender: FDA-Public Use
  Company Number: PHHO2008DE03238

PATIENT
  Sex: Female
  Weight: 75 kg

DRUGS (1)
  1. CERTICAN [Suspect]
     Indication: CONGENITAL CYSTIC KIDNEY DISEASE
     Dosage: UNK
     Route: 048
     Dates: start: 20070118, end: 20080223

REACTIONS (5)
  - PLATELET COUNT DECREASED [None]
  - OVARIAN CYST [None]
  - SURGERY [None]
  - RADICAL HYSTERECTOMY [None]
  - VAGINAL HAEMORRHAGE [None]
